FAERS Safety Report 7673380-1 (Version None)
Quarter: 2011Q3

REPORT INFORMATION
  Report Type: 
  Country: None (occurrence: None)
  Receive Date: 20110810
  Receipt Date: 20110801
  Transmission Date: 20111222
  Serious: Yes (Hospitalization)
  Sender: FDA-Public Use
  Company Number: US-JNJFOC-20110507694

PATIENT
  Sex: Female
  Weight: 64 kg

DRUGS (3)
  1. MERCAPTOPURINE [Concomitant]
  2. INFLIXIMAB, RECOMBINANT [Suspect]
     Indication: CROHN'S DISEASE
     Route: 042
     Dates: start: 20081126
  3. INFLIXIMAB, RECOMBINANT [Suspect]
     Dosage: DOSE: ^750^
     Route: 042
     Dates: start: 20101020

REACTIONS (2)
  - CROHN'S DISEASE [None]
  - ILEAL STENOSIS [None]
